FAERS Safety Report 16575421 (Version 1)
Quarter: 2019Q3

REPORT INFORMATION
  Report Type: Other
  Country: PT (occurrence: PT)
  Receive Date: 20190716
  Receipt Date: 20190716
  Transmission Date: 20191004
  Serious: Yes (Hospitalization)
  Sender: FDA-Public Use
  Company Number: PT-CELLTRION INC.-2019PT022477

PATIENT

DRUGS (7)
  1. ZOLEDRONIC ACID [Concomitant]
     Active Substance: ZOLEDRONIC ACID
     Dosage: ONGOING = CHECKED
     Route: 065
     Dates: start: 20171102
  2. FASLODEX [Suspect]
     Active Substance: FULVESTRANT
     Indication: BREAST CANCER
     Dosage: 250 MG, 2 WEEK
     Route: 030
     Dates: start: 20171102
  3. PERTUZUMAB. [Suspect]
     Active Substance: PERTUZUMAB
     Indication: BREAST CANCER
     Dosage: 420 MG, 3 WEEK (MOST RECENT DOSE PRIOR TO THE EVENT: 12/JUL/2018)
     Route: 042
     Dates: start: 20170608
  4. PACLITAXEL. [Suspect]
     Active Substance: PACLITAXEL
     Indication: BREAST CANCER
     Dosage: 120 MG, 1 WEEK (MOST RECENT DOSE PRIOR TO THE EVENT:20/JUL/2017)
     Route: 042
     Dates: start: 20170608
  5. TRASTUZUMAB (UNKNOWN) [Suspect]
     Active Substance: TRASTUZUMAB
     Indication: BREAST CANCER
     Dosage: 324 MG (MOST RECENT DOSE PRIOR TO THE EVENT: 17/APR/2019)
     Route: 041
     Dates: start: 20170608
  6. BISOPROLOL [Concomitant]
     Active Substance: BISOPROLOL
     Indication: EJECTION FRACTION DECREASED
     Dosage: ONGOING = CHECKED
     Route: 065
     Dates: start: 20180802
  7. PERINDOPRIL [Concomitant]
     Active Substance: PERINDOPRIL
     Indication: EJECTION FRACTION DECREASED
     Dosage: UNK, ONGOING = CHECKED
     Route: 065
     Dates: start: 20180426

REACTIONS (1)
  - Pulmonary embolism [Not Recovered/Not Resolved]

NARRATIVE: CASE EVENT DATE: 20190506
